FAERS Safety Report 10184773 (Version 1)
Quarter: 2014Q2

REPORT INFORMATION
  Report Type: Spontaneous
  Country: US (occurrence: None)
  Receive Date: 20140520
  Receipt Date: 20140520
  Transmission Date: 20141212
  Serious: Yes (Death)
  Sender: FDA-Public Use
  Company Number: None

PATIENT
  Age: 75 Year
  Sex: Male
  Weight: 74.84 kg

DRUGS (1)
  1. VALTREX [Suspect]
     Indication: HERPES ZOSTER
     Dosage: 1 PILL THREE TIMES DAILY BY MOUTH
     Route: 048
     Dates: start: 20131013, end: 20131020

REACTIONS (6)
  - Confusional state [None]
  - Speech disorder [None]
  - Musculoskeletal disorder [None]
  - Coma [None]
  - Dialysis [None]
  - Movement disorder [None]
